FAERS Safety Report 8424307-6 (Version None)
Quarter: 2012Q2

REPORT INFORMATION
  Report Type: 
  Country: None (occurrence: None)
  Receive Date: 20120608
  Receipt Date: 20111212
  Transmission Date: 20120825
  Serious: No
  Sender: FDA-Public Use
  Company Number: US-ASTRAZENECA-2011SE68526

PATIENT
  Age: 11 Year
  Sex: Female
  Weight: 24.9 kg

DRUGS (3)
  1. PULMICORT FLEXHALER [Suspect]
     Indication: ASTHMA
     Dosage: 2 PUFFS QD (EVERY DAY)
     Route: 055
  2. CLONASE [Concomitant]
  3. CETIRIZINE HCL [Concomitant]

REACTIONS (3)
  - COUGH [None]
  - ASTHMA [None]
  - DYSPNOEA [None]
